FAERS Safety Report 4751751-0 (Version None)
Quarter: 2005Q3

REPORT INFORMATION
  Report Type: 
  Country: None (occurrence: None)
  Receive Date: 20050822
  Receipt Date: 20050822
  Transmission Date: 20060218
  Serious: No
  Sender: FDA-Public Use
  Company Number: None

PATIENT
  Sex: Male
  Weight: 91.6266 kg

DRUGS (2)
  1. CELEBREX [Suspect]
     Indication: PANCREATIC CARCINOMA
     Dosage: 1 TABLET    TWICE A DAY   PO
     Route: 048
     Dates: start: 20050513, end: 20050722
  2. IRINOTECAN              PFIZER [Suspect]
     Dosage: 30MG/M2    ONCE A WEEK/4 WKS    IV DRIP
     Route: 041
     Dates: start: 20050518, end: 20050608

REACTIONS (5)
  - ARRHYTHMIA [None]
  - ATRIAL FIBRILLATION [None]
  - BLOOD PHOSPHORUS DECREASED [None]
  - POST PROCEDURAL COMPLICATION [None]
  - THERAPY NON-RESPONDER [None]
